FAERS Safety Report 9822803 (Version 2)
Quarter: 2014Q1

REPORT INFORMATION
  Report Type: Spontaneous
  Country: US (occurrence: US)
  Receive Date: 20140116
  Receipt Date: 20140116
  Transmission Date: 20141002
  Serious: Yes (Other)
  Sender: FDA-Public Use
  Company Number: US-PFIZER INC-2013192966

PATIENT
  Age: 52 Year
  Sex: Female

DRUGS (8)
  1. PHENYTOIN SODIUM [Suspect]
     Indication: STATUS EPILEPTICUS
     Dosage: UNK
     Route: 042
  2. FOSPHENYTOIN SODIUM [Suspect]
     Indication: STATUS EPILEPTICUS
     Dosage: UNK
     Route: 042
  3. FLUCONAZOLE [Suspect]
     Indication: IMMUNE SYSTEM DISORDER
     Dosage: UNK
  4. FLUCONAZOLE [Suspect]
     Indication: HYPOTENSION
  5. VANCOMYCIN [Concomitant]
     Indication: IMMUNE SYSTEM DISORDER
     Dosage: UNK
  6. VANCOMYCIN [Concomitant]
     Indication: HYPOTENSION
  7. MEROPENEM [Concomitant]
     Indication: IMMUNE SYSTEM DISORDER
  8. MEROPENEM [Concomitant]
     Indication: HYPOTENSION

REACTIONS (3)
  - Drug level above therapeutic [Unknown]
  - Sinus tachycardia [Unknown]
  - Electrocardiogram change [Unknown]
